FAERS Safety Report 8230738-X (Version None)
Quarter: 2012Q1

REPORT INFORMATION
  Report Type: 
  Country: None (occurrence: None)
  Receive Date: 20120322
  Receipt Date: 20120322
  Transmission Date: 20120608
  Serious: Yes (Hospitalization, Other)
  Sender: FDA-Public Use
  Company Number: None

PATIENT
  Age: 66 Year
  Sex: Female
  Weight: 59.4 kg

DRUGS (15)
  1. FERROUS GLUCONATE (FERROUS GLUCONATE) TABLET [Suspect]
     Indication: IRON DEFICIENCY
     Dosage: 325 MG, BID, ORAL
     Route: 048
     Dates: start: 20090227, end: 20090828
  2. LORTAB [Suspect]
     Indication: ANALGESIC THERAPY
     Dosage: 1 DF EVERY 6 HOURS AS NEEDED
     Dates: start: 20090825, end: 20090828
  3. LORTAB [Suspect]
     Indication: ANALGESIC THERAPY
     Dosage: 1 DF EVERY 6 HOURS AS NEEDED
     Dates: start: 20090402, end: 20090629
  4. ZOFRAN [Suspect]
     Indication: NAUSEA
     Dosage: 1 DF EVERY 6 HOURS AS NEEDED, ORAL
     Route: 048
     Dates: end: 20090828
  5. UNCODEABLE ^UNCLASSIFIABLE^ (UNCODEABLE ^UNCLASSIFIABLE^) [Suspect]
     Indication: PRODUCT USED FOR UNKNOWN INDICATION
     Dosage: QD 5 DAYS A WEEK X 3 WEEKS
     Dates: start: 20090316, end: 20090406
  6. ARTIFICIAL TEARS [Concomitant]
  7. MEGACE [Suspect]
     Indication: APPETITE DISORDER
     Dosage: 3 DF, QD, ORAL
     Route: 048
  8. ASPIRIN [Concomitant]
  9. SIMVASTATIN [Suspect]
     Indication: BLOOD CHOLESTEROL
     Dosage: 40 MG, BID
     Dates: start: 20090227, end: 20090828
  10. SUNITINIB MALATE [Suspect]
     Indication: RENAL CANCER
     Dosage: 50 MG, BID
     Dates: start: 20090601, end: 20090828
  11. RANITIDINE [Suspect]
     Indication: ULCER
     Dosage: 150 MG, BID
     Dates: end: 20090828
  12. PIOGLITAZONE [Suspect]
     Indication: DIABETES MELLITUS
     Dosage: 30 MG, QD, ORAL
     Route: 048
     Dates: start: 20070604
  13. UNCODEABLE ^INVESTIGATIONAL DRUG^ (UNCODEABLE ^INVESTIGATIONAL DRUG^) [Suspect]
     Indication: PROPHYLAXIS
     Dates: start: 20090512, end: 20090707
  14. COLACE (DOCUSATE SODIUM) [Suspect]
     Indication: CONSTIPATION
     Dosage: 100 MG, BID
     Dates: start: 20090402, end: 20090828
  15. ACTONEL [Concomitant]

REACTIONS (14)
  - COGNITIVE DISORDER [None]
  - HYPERTENSION [None]
  - FATIGUE [None]
  - CONFUSIONAL STATE [None]
  - VOMITING [None]
  - POSTERIOR REVERSIBLE ENCEPHALOPATHY SYNDROME [None]
  - NAUSEA [None]
  - MALAISE [None]
  - ABDOMINAL PAIN [None]
  - PALLOR [None]
  - DISTURBANCE IN ATTENTION [None]
  - HEADACHE [None]
  - BLOOD UREA INCREASED [None]
  - MENTAL STATUS CHANGES [None]
